FAERS Safety Report 23700306 (Version 6)
Quarter: 2024Q3

REPORT INFORMATION
  Report Type: Report from Study
  Country: US (occurrence: US)
  Receive Date: 20240403
  Receipt Date: 20240902
  Transmission Date: 20241017
  Serious: Yes (Other)
  Sender: ROCHE
  Company Number: US-ROCHE-3533902

PATIENT
  Age: 68 Year
  Sex: Female
  Weight: 80.376 kg

DRUGS (22)
  1. XOLAIR PFS [Suspect]
     Active Substance: OMALIZUMAB
     Indication: Hypotension
     Route: 058
  2. XOLAIR PFS [Suspect]
     Active Substance: OMALIZUMAB
     Indication: Hereditary angioedema
  3. XOLAIR PFS [Suspect]
     Active Substance: OMALIZUMAB
     Indication: Anaphylactic shock
  4. XOLAIR PFS [Suspect]
     Active Substance: OMALIZUMAB
     Indication: Angioedema
  5. POTASSIUM CHLORIDE [Concomitant]
     Active Substance: POTASSIUM CHLORIDE
     Route: 048
  6. PANTOPRAZOLE [Concomitant]
     Active Substance: PANTOPRAZOLE
     Indication: Gastrooesophageal reflux disease
     Route: 048
  7. PREDNISONE [Concomitant]
     Active Substance: PREDNISONE
     Indication: Rheumatoid arthritis
     Route: 048
  8. PREDNISONE [Concomitant]
     Active Substance: PREDNISONE
     Route: 048
  9. PREDNISONE [Concomitant]
     Active Substance: PREDNISONE
     Route: 048
  10. PREDNISONE [Concomitant]
     Active Substance: PREDNISONE
     Route: 048
  11. RESTASIS [Concomitant]
     Active Substance: CYCLOSPORINE
     Indication: Dry eye
     Dosage: 0.05 %
     Route: 031
     Dates: start: 2023
  12. DUONEB [Concomitant]
     Active Substance: ALBUTEROL SULFATE\IPRATROPIUM BROMIDE
  13. ATROVENT [Concomitant]
     Active Substance: IPRATROPIUM BROMIDE
  14. ALBUTEROL SULFATE [Concomitant]
     Active Substance: ALBUTEROL SULFATE
  15. HYDROCHLOROTHIAZIDE [Concomitant]
     Active Substance: HYDROCHLOROTHIAZIDE
     Route: 048
  16. MONTELUKAST SODIUM [Concomitant]
     Active Substance: MONTELUKAST\MONTELUKAST SODIUM
     Route: 048
  17. PEPCID AC [Concomitant]
     Active Substance: FAMOTIDINE
     Route: 048
  18. PEPCID AC [Concomitant]
     Active Substance: FAMOTIDINE
     Route: 048
  19. PEPCID AC [Concomitant]
     Active Substance: FAMOTIDINE
     Route: 048
  20. ALLEGRA ALLERGY [Concomitant]
     Active Substance: FEXOFENADINE HYDROCHLORIDE
     Route: 048
  21. VENTOLIN [Concomitant]
     Active Substance: ALBUTEROL SULFATE
  22. ZYRTEC [Concomitant]
     Active Substance: CETIRIZINE HYDROCHLORIDE
     Route: 048

REACTIONS (13)
  - Cataract [Unknown]
  - Hypersensitivity [Unknown]
  - Intestinal barrier dysfunction [Unknown]
  - Alopecia [Unknown]
  - Gastrooesophageal reflux disease [Unknown]
  - Osteoarthritis [Unknown]
  - Tremor [Unknown]
  - Dizziness [Unknown]
  - Hypertension [Unknown]
  - Dry eye [Unknown]
  - Feeling abnormal [Unknown]
  - Illness [Unknown]
  - Off label use [Unknown]

NARRATIVE: CASE EVENT DATE: 20210101
